FAERS Safety Report 11779063 (Version 1)
Quarter: 2015Q4

REPORT INFORMATION
  Report Type: Spontaneous
  Country: US (occurrence: US)
  Receive Date: 20151125
  Receipt Date: 20151125
  Transmission Date: 20160304
  Serious: Yes (Hospitalization)
  Sender: FDA-Public Use
  Company Number: US-INCYTE CORPORATION-2015IN006117

PATIENT
  Sex: Female
  Weight: 69.39 kg

DRUGS (2)
  1. LEVAQUIN [Suspect]
     Active Substance: LEVOFLOXACIN
  2. JAKAFI [Suspect]
     Active Substance: RUXOLITINIB
     Indication: MYELOFIBROSIS
     Dosage: FOUR 5 MG TABLETS, BID
     Route: 048
     Dates: start: 20141208, end: 20150903

REACTIONS (2)
  - Infection [Unknown]
  - Adverse event [Unknown]

NARRATIVE: CASE EVENT DATE: 2015
